FAERS Safety Report 6139720-X (Version None)
Quarter: 2009Q2

REPORT INFORMATION
  Report Type: 
  Country: None (occurrence: None)
  Receive Date: 20090401
  Receipt Date: 20090323
  Transmission Date: 20091009
  Serious: Yes (Other)
  Sender: FDA-Public Use
  Company Number: DE-ASTRAZENECA-2009AC00940

PATIENT
  Age: 44 Year
  Sex: Female

DRUGS (5)
  1. QUETIAPINE [Suspect]
     Indication: SCHIZOAFFECTIVE DISORDER
  2. CARBAMAZEPINE [Interacting]
     Indication: SCHIZOAFFECTIVE DISORDER
  3. CARBAMAZEPINE [Interacting]
     Indication: AFFECTIVE DISORDER
  4. RISPERIDONE [Concomitant]
     Indication: SCHIZOAFFECTIVE DISORDER
  5. ZOLPIDEM [Concomitant]
     Indication: SCHIZOAFFECTIVE DISORDER

REACTIONS (2)
  - ANTIPSYCHOTIC DRUG LEVEL BELOW THERAPEUTIC [None]
  - DRUG INTERACTION [None]
